FAERS Safety Report 16946920 (Version 1)
Quarter: 2019Q4

REPORT INFORMATION
  Report Type: Spontaneous
  Country: DE (occurrence: DE)
  Receive Date: 20191022
  Receipt Date: 20191022
  Transmission Date: 20200122
  Serious: Yes (Other)
  Sender: FDA-Public Use
  Company Number: NVSC2019DE009975

PATIENT
  Sex: Female

DRUGS (3)
  1. METOPROLOL 100 - 1 A PHARMA [Suspect]
     Active Substance: METOPROLOL
     Indication: CORONARY ARTERY DISEASE
     Dosage: 50 MG, BID (1-0-1)
     Route: 065
     Dates: start: 201909
  2. METOPROLOL 100 - 1 A PHARMA [Suspect]
     Active Substance: METOPROLOL
     Indication: HYPERTENSION
  3. RASILEZ [Suspect]
     Active Substance: ALISKIREN
     Indication: PRODUCT USED FOR UNKNOWN INDICATION
     Route: 065

REACTIONS (3)
  - Angina pectoris [Unknown]
  - Myalgia [Unknown]
  - Hyperhidrosis [Unknown]

NARRATIVE: CASE EVENT DATE: 201909
